FAERS Safety Report 16934628 (Version 1)
Quarter: 2019Q4

REPORT INFORMATION
  Report Type: Spontaneous
  Country: CA (occurrence: CA)
  Receive Date: 20191018
  Receipt Date: 20191018
  Transmission Date: 20200122
  Serious: Yes (Death)
  Sender: FDA-Public Use
  Company Number: CA-TEVA-2019-CA-1124241

PATIENT
  Age: 52 Year
  Sex: Male

DRUGS (12)
  1. MORPHINE [Concomitant]
     Active Substance: MORPHINE
  2. TRAZODONE [Concomitant]
     Active Substance: TRAZODONE HYDROCHLORIDE
  3. CEFTRIAXONE SODIUM. [Suspect]
     Active Substance: CEFTRIAXONE SODIUM
     Indication: PRODUCT USED FOR UNKNOWN INDICATION
     Dosage: 2 GRAM DAILY;
     Route: 042
  4. DEXILANT [Concomitant]
     Active Substance: DEXLANSOPRAZOLE
  5. HALOPERIDOL. [Concomitant]
     Active Substance: HALOPERIDOL
  6. NICOTINE. [Concomitant]
     Active Substance: NICOTINE
     Indication: PRODUCT USED FOR UNKNOWN INDICATION
  7. QUETIAPINE. [Concomitant]
     Active Substance: QUETIAPINE
  8. VANCOMYCIN [Suspect]
     Active Substance: VANCOMYCIN
     Indication: BURSITIS
     Dosage: 2 GRAM DAILY;
     Route: 042
  9. LORAZEPAM. [Concomitant]
     Active Substance: LORAZEPAM
  10. PREGABALIN. [Concomitant]
     Active Substance: PREGABALIN
  11. NAPROXEN SODIUM. [Suspect]
     Active Substance: NAPROXEN SODIUM
     Indication: PRODUCT USED FOR UNKNOWN INDICATION
     Dosage: 2 DOSAGE FORMS DAILY;
     Route: 048
  12. ACETAMINOPHEN;CAFFEINE [Concomitant]
     Active Substance: ACETAMINOPHEN\CAFFEINE

REACTIONS (2)
  - Blood creatinine increased [Fatal]
  - Death [Fatal]
